FAERS Safety Report 21583275 (Version 2)
Quarter: 2023Q2

REPORT INFORMATION
  Report Type: Spontaneous
  Country: JP (occurrence: JP)
  Receive Date: 20221111
  Receipt Date: 20230519
  Transmission Date: 20230722
  Serious: Yes (Hospitalization, Other)
  Sender: FDA-Public Use
  Company Number: JP-GLAXOSMITHKLINE-JP2022JPN163650

PATIENT

DRUGS (8)
  1. MEPOLIZUMAB [Suspect]
     Active Substance: MEPOLIZUMAB
     Indication: Asthma
     Dosage: 100 MG, EVERY 4 WEEKS
     Route: 058
     Dates: start: 20180120
  2. SINGULAIR OD [Concomitant]
     Indication: Asthma
     Dosage: 10 MG, 1D
     Route: 048
     Dates: start: 201801
  3. RUPAFIN TABLETS [Concomitant]
     Indication: Asthma
     Dosage: 10 MG, 1D
     Route: 048
     Dates: start: 201901
  4. CLARITHROMYCIN [Concomitant]
     Active Substance: CLARITHROMYCIN
     Indication: Asthma
     Dosage: 200 MG, 1D
     Route: 048
     Dates: start: 201801
  5. THEODUR TABLETS [Concomitant]
     Indication: Asthma
     Dosage: 200 MG, 1D
     Route: 048
     Dates: start: 201901
  6. CARBOCYSTEINE [Concomitant]
     Active Substance: CARBOCYSTEINE
     Indication: Asthma
     Dosage: 1000 MG, 1D
     Route: 048
     Dates: start: 201712
  7. SPIRIVA [Concomitant]
     Active Substance: TIOTROPIUM BROMIDE MONOHYDRATE
     Indication: Asthma
     Dosage: 2 DF, 1D
     Route: 055
     Dates: start: 201712
  8. FLUTICASONE PROPIONATE\FORMOTEROL FUMARATE [Concomitant]
     Active Substance: FLUTICASONE PROPIONATE\FORMOTEROL FUMARATE
     Indication: Asthma
     Dosage: 4 DF, 1D
     Route: 055
     Dates: start: 201801

REACTIONS (1)
  - Renal cancer [Recovered/Resolved]

NARRATIVE: CASE EVENT DATE: 20220418
